FAERS Safety Report 12195755 (Version 1)
Quarter: 2016Q1

REPORT INFORMATION
  Report Type: Spontaneous
  Country: US (occurrence: US)
  Receive Date: 20160321
  Receipt Date: 20160321
  Transmission Date: 20160526
  Serious: No
  Sender: FDA-Public Use
  Company Number: US-PERRIGO-15US001784

PATIENT
  Age: 38 Year
  Sex: Male
  Weight: 70.3 kg

DRUGS (3)
  1. MINOXIDIL FOR MEN [Suspect]
     Active Substance: MINOXIDIL
     Indication: ALOPECIA
     Dosage: 1 ML, BID
     Route: 061
     Dates: start: 201412, end: 20150207
  2. LEVETIRACETAM. [Concomitant]
     Active Substance: LEVETIRACETAM
     Indication: EPILEPSY
     Dosage: UNK
     Route: 065
  3. BETAMETHASONE DIPROPIONATE. [Suspect]
     Active Substance: BETAMETHASONE DIPROPIONATE
     Indication: ALOPECIA
     Dosage: ONE SMALL APPLICATION, BID
     Route: 061
     Dates: start: 201411, end: 20150207

REACTIONS (3)
  - Drug interaction [Not Recovered/Not Resolved]
  - Application site discolouration [Not Recovered/Not Resolved]
  - Off label use [Recovered/Resolved]

NARRATIVE: CASE EVENT DATE: 201411
